FAERS Safety Report 4944634-4 (Version None)
Quarter: 2006Q1

REPORT INFORMATION
  Report Type: 
  Country: None (occurrence: None)
  Receive Date: 20060106
  Receipt Date: 20050921
  Transmission Date: 20060701
  Serious: No
  Sender: FDA-Public Use
  Company Number: 200511056BWH

PATIENT
  Age: 68 Year
  Sex: Male

DRUGS (8)
  1. LEVITRA [Suspect]
     Indication: ERECTILE DYSFUNCTION
     Dosage: 20 MG, ONCE, ORAL
     Route: 048
     Dates: start: 20050518
  2. LUPRON [Concomitant]
  3. CASODEX [Concomitant]
  4. ROCALTROL [Concomitant]
  5. DIFLUNISAL [Concomitant]
  6. ALBUTEROL [Concomitant]
  7. ATROVENT [Concomitant]
  8. TRAVATAN [Concomitant]

REACTIONS (1)
  - ERECTILE DYSFUNCTION [None]
